FAERS Safety Report 6836221-8 (Version None)
Quarter: 2010Q3

REPORT INFORMATION
  Report Type: 
  Country: None (occurrence: None)
  Receive Date: 20100713
  Receipt Date: 20100713
  Transmission Date: 20110219
  Serious: Yes (Death)
  Sender: FDA-Public Use
  Company Number: None

PATIENT
  Sex: Female
  Weight: 8.75 kg

DRUGS (5)
  1. METHOTREXATE [Suspect]
     Dosage: 3.04 MG
  2. VINCRISTINE SULFATE [Suspect]
     Dosage: 1.52 MG
  3. CISPLATIN [Suspect]
     Dosage: 2606 MG
  4. CYCLOPHOSPHAMIDE [Suspect]
     Dosage: 90 MG
  5. ETOPOSIDE [Suspect]
     Dosage: 57 MG

REACTIONS (1)
  - DEATH [None]
